FAERS Safety Report 7486121-8 (Version None)
Quarter: 2011Q2

REPORT INFORMATION
  Report Type: 
  Country: None (occurrence: None)
  Receive Date: 20110517
  Receipt Date: 20110510
  Transmission Date: 20111010
  Serious: Yes (Hospitalization, Other)
  Sender: FDA-Public Use
  Company Number: US-AMGEN-USASP2011023062

PATIENT
  Age: 63 Year
  Sex: Female
  Weight: 42.63 kg

DRUGS (4)
  1. NEUPOGEN [Suspect]
     Indication: CHEMOTHERAPY
     Dosage: 300 A?G, PER CHEMO REGIM
     Route: 058
     Dates: start: 20110104
  2. GEMZAR [Concomitant]
     Route: 042
     Dates: start: 20110321
  3. XELODA [Concomitant]
     Dosage: UNK
     Route: 048
     Dates: start: 20110321
  4. NEULASTA [Suspect]
     Indication: CHEMOTHERAPY
     Dosage: 6 MG, UNK
     Dates: start: 20110203, end: 20110203

REACTIONS (2)
  - SMALL INTESTINAL OBSTRUCTION [None]
  - NEUTROPENIA [None]
